FAERS Safety Report 23362172 (Version 1)
Quarter: 2024Q1

REPORT INFORMATION
  Report Type: Spontaneous
  Country: US (occurrence: US)
  Receive Date: 20240103
  Receipt Date: 20240103
  Transmission Date: 20240410
  Serious: Yes (Death, Other)
  Sender: FDA-Public Use
  Company Number: US-AMGEN-USASP2023232972

PATIENT

DRUGS (1)
  1. BEVACIZUMAB [Suspect]
     Active Substance: BEVACIZUMAB
     Indication: Malignant neoplasm oligoprogression
     Dosage: UNK
     Route: 065

REACTIONS (12)
  - Malignant neoplasm oligoprogression [Fatal]
  - Liver disorder [Fatal]
  - Pneumonia parainfluenzae viral [Fatal]
  - Pneumonitis [Unknown]
  - Radiation skin injury [Unknown]
  - Oesophagitis [Unknown]
  - Dysphagia [Unknown]
  - Therapy partial responder [Unknown]
  - Decreased appetite [Unknown]
  - Nausea [Unknown]
  - Cough [Unknown]
  - Fatigue [Unknown]
